FAERS Safety Report 4857004-4 (Version None)
Quarter: 2005Q4

REPORT INFORMATION
  Report Type: 
  Country: None (occurrence: None)
  Receive Date: 20051219
  Receipt Date: 20041209
  Transmission Date: 20060501
  Serious: No
  Sender: FDA-Public Use
  Company Number: US-GLAXOSMITHKLINE-A0536728A

PATIENT
  Age: 79 Year
  Sex: Female
  Weight: 65.5 kg

DRUGS (3)
  1. NICODERM CQ [Suspect]
     Route: 062
  2. UNSPECIFIED MEDICATION [Concomitant]
  3. LIPITOR [Concomitant]
     Indication: BLOOD CHOLESTEROL INCREASED
     Route: 048

REACTIONS (1)
  - NICOTINE DEPENDENCE [None]
